FAERS Safety Report 9889203 (Version 2)
Quarter: 2014Q2

REPORT INFORMATION
  Report Type: Spontaneous
  Country: US (occurrence: None)
  Receive Date: 20140207
  Receipt Date: 20140407
  Transmission Date: 20141212
  Serious: No
  Sender: FDA-Public Use
  Company Number: 2014SGN00067

PATIENT
  Age: 76 Year
  Sex: Male

DRUGS (8)
  1. ADCETRIS [Suspect]
     Indication: HODGKIN^S DISEASE RECURRENT
     Route: 042
     Dates: start: 20130509, end: 20130801
  2. BLEOMYCIN [Suspect]
     Indication: HODGKIN^S DISEASE RECURRENT
     Dates: start: 200812, end: 20090313
  3. FLOMAX (MORNIFLUMATE) [Concomitant]
  4. CITALOPRAM (CITALOPRAM HYDROCHLORIDE) [Concomitant]
  5. ALLOPURINOL (ALLOPURINOL) [Concomitant]
  6. COLCHICINE (COLCHICINE) [Concomitant]
  7. COMPAZINE (PROCHLORPERAZINE MALEATE) [Concomitant]
  8. ARICEPT (DONEPEZIL HYDROCHLORIDE) [Concomitant]

REACTIONS (3)
  - Lung infiltration [None]
  - Pre-existing disease [None]
  - Disease recurrence [None]
